FAERS Safety Report 6113409-5 (Version None)
Quarter: 2009Q1

REPORT INFORMATION
  Report Type: 
  Country: None (occurrence: None)
  Receive Date: 20090312
  Receipt Date: 20090302
  Transmission Date: 20090719
  Serious: Yes (Hospitalization, Other)
  Sender: FDA-Public Use
  Company Number: GB-WYE-H08488109

PATIENT

DRUGS (2)
  1. ACETAMINOPHEN [Suspect]
     Indication: DRUG USE FOR UNKNOWN INDICATION
     Dosage: 5 G
     Route: 065
  2. IBUPROFEN [Suspect]
     Dosage: 12 G
     Route: 065

REACTIONS (2)
  - OVERDOSE [None]
  - RENAL FAILURE ACUTE [None]
